FAERS Safety Report 16402860 (Version 1)
Quarter: 2019Q2

REPORT INFORMATION
  Report Type: Spontaneous
  Country: FR (occurrence: FR)
  Receive Date: 20190607
  Receipt Date: 20190607
  Transmission Date: 20190711
  Serious: Yes (Hospitalization)
  Sender: FDA-Public Use
  Company Number: FR-SA-2019SA146801

PATIENT
  Age: 52 Year
  Sex: Male
  Weight: 76 kg

DRUGS (7)
  1. CALCIUM LEVOFOLINATE [Suspect]
     Active Substance: LEVOLEUCOVORIN CALCIUM
     Indication: GASTRIC CANCER
     Dosage: 195 MG, QCY
     Route: 041
     Dates: start: 20190410, end: 20190410
  2. ZOPHREN [ONDANSETRON HYDROCHLORIDE] [Concomitant]
     Active Substance: ONDANSETRON
     Indication: ANTIEMETIC SUPPORTIVE CARE
     Dosage: 1 DF, QCY
     Route: 042
     Dates: start: 20190410, end: 20190410
  3. SOLU-MEDROL [Concomitant]
     Active Substance: METHYLPREDNISOLONE SODIUM SUCCINATE
     Indication: ANTIEMETIC SUPPORTIVE CARE
     Dosage: 80 MG, QCY
     Route: 042
     Dates: start: 20190410, end: 20190410
  4. EMEND [Concomitant]
     Active Substance: APREPITANT
     Indication: ANTIEMETIC SUPPORTIVE CARE
     Dosage: 1 DF, QCY
     Route: 048
     Dates: start: 20190410, end: 20190410
  5. OXALIPLATIN. [Suspect]
     Active Substance: OXALIPLATIN
     Indication: GASTRIC CANCER
     Dosage: 150 MG, QCY
     Route: 041
     Dates: start: 20190410, end: 20190410
  6. FLUOROURACIL. [Suspect]
     Active Substance: FLUOROURACIL
     Indication: GASTRIC CANCER
     Dosage: 3900 MG, QCY
     Route: 041
     Dates: start: 20190410, end: 20190410
  7. TAXOTERE [Suspect]
     Active Substance: DOCETAXEL
     Indication: GASTRIC CANCER
     Dosage: 100 MG, QCY
     Route: 041
     Dates: start: 20190410, end: 20190410

REACTIONS (3)
  - Hepatocellular injury [Recovered/Resolved]
  - Pyrexia [Recovered/Resolved]
  - Diarrhoea [Recovered/Resolved]

NARRATIVE: CASE EVENT DATE: 20190410
